FAERS Safety Report 14308050 (Version 1)
Quarter: 2017Q4

REPORT INFORMATION
  Report Type: Spontaneous
  Country: IT (occurrence: IT)
  Receive Date: 20171220
  Receipt Date: 20171220
  Transmission Date: 20180321
  Serious: Yes (Hospitalization, Other)
  Sender: FDA-Public Use
  Company Number: IT-SCIEGEN PHARMACEUTICALS INC-2017SCILIT00764

PATIENT
  Age: 4 Year
  Sex: Male

DRUGS (2)
  1. QUETIAPINE. [Suspect]
     Active Substance: QUETIAPINE
     Indication: PRODUCT USED FOR UNKNOWN INDICATION
     Dosage: UNK
     Route: 065
  2. SERTRALINE [Suspect]
     Active Substance: SERTRALINE HYDROCHLORIDE
     Indication: PRODUCT USED FOR UNKNOWN INDICATION
     Dosage: UNK
     Route: 065

REACTIONS (20)
  - Miosis [Unknown]
  - Extrapyramidal disorder [Unknown]
  - Toxicity to various agents [Unknown]
  - Tonic convulsion [Unknown]
  - Somnolence [Unknown]
  - Dysarthria [Recovering/Resolving]
  - Clumsiness [Unknown]
  - Lacrimation increased [Unknown]
  - Rash erythematous [Unknown]
  - Asthenia [Unknown]
  - Constipation [Unknown]
  - Dystonia [Recovering/Resolving]
  - Cough [Unknown]
  - Gait disturbance [Recovering/Resolving]
  - Rhinorrhoea [Unknown]
  - Urinary incontinence [Unknown]
  - Blepharospasm [Unknown]
  - Hyporeflexia [Recovering/Resolving]
  - Mydriasis [Recovered/Resolved]
  - Pain in extremity [Recovering/Resolving]
